FAERS Safety Report 18833037 (Version 1)
Quarter: 2021Q1

REPORT INFORMATION
  Report Type: Spontaneous
  Country: US (occurrence: US)
  Receive Date: 20210203
  Receipt Date: 20210203
  Transmission Date: 20210419
  Serious: No
  Sender: FDA-Public Use
  Company Number: US-ALLERGAN-2033408US

PATIENT
  Sex: Female
  Weight: 131.54 kg

DRUGS (2)
  1. BOTOX [Suspect]
     Active Substance: ONABOTULINUMTOXINA
     Indication: BLADDER DYSFUNCTION
     Dosage: UNK, SINGLE
     Route: 030
     Dates: start: 2019, end: 2019
  2. BOTOX [Suspect]
     Active Substance: ONABOTULINUMTOXINA
     Dosage: UNK, SINGLE
     Route: 030
     Dates: start: 2019, end: 2019

REACTIONS (1)
  - Therapeutic response shortened [Unknown]
